FAERS Safety Report 11832574 (Version 1)
Quarter: 2015Q4

REPORT INFORMATION
  Report Type: Spontaneous
  Country: None (occurrence: US)
  Receive Date: 20151214
  Receipt Date: 20151214
  Transmission Date: 20160305
  Serious: No
  Sender: FDA-Public Use
  Company Number: US-MEDAC PHARMA, INC.-1045444

PATIENT
  Age: 61 Year
  Sex: Female
  Weight: 72.73 kg

DRUGS (3)
  1. RASUVO [Suspect]
     Active Substance: METHOTREXATE SODIUM
     Indication: RHEUMATOID ARTHRITIS
     Dates: start: 201508
  2. MULTIVITAMIN [Concomitant]
     Active Substance: VITAMINS
  3. CRANBERRY. [Concomitant]
     Active Substance: CRANBERRY

REACTIONS (3)
  - Device issue [None]
  - Accidental exposure to product [Recovered/Resolved]
  - No adverse event [None]

NARRATIVE: CASE EVENT DATE: 20151113
